FAERS Safety Report 14488633 (Version 1)
Quarter: 2018Q1

REPORT INFORMATION
  Report Type: Report from Study
  Country: ES (occurrence: ES)
  Receive Date: 20180205
  Receipt Date: 20180205
  Transmission Date: 20180509
  Serious: Yes (Hospitalization)
  Sender: FDA-Public Use
  Company Number: ES-TEVA-2018-ES-851655

PATIENT
  Age: 63 Year
  Sex: Male

DRUGS (9)
  1. ENALAPRIL 5 [Suspect]
     Active Substance: ENALAPRIL
     Indication: HYPERTENSION
     Dosage: 1-0-0
     Route: 048
     Dates: start: 20170331, end: 20170406
  2. NIFEDIPINO 10 [Concomitant]
     Indication: HYPERTENSION
     Dosage: 1.0.0
     Route: 048
     Dates: start: 20170331
  3. CLORACEPATO DIPOTASICO [Concomitant]
     Indication: ANXIETY
     Dosage: 10 MG BREAKFAST MEAL AND DINNER
     Route: 048
     Dates: start: 20170331
  4. INSULINA GLULISINA (2970A) [Suspect]
     Active Substance: INSULIN GLULISINE
     Dosage: IF REQUIRED
     Route: 058
     Dates: start: 20170331
  5. ADIRO 100 [Concomitant]
     Active Substance: ASPIRIN
     Dosage: 0-1-0
     Route: 048
     Dates: start: 20170331
  6. PANTOPRAZOL 40 [Concomitant]
     Active Substance: PANTOPRAZOLE SODIUM
     Indication: PROPHYLAXIS AGAINST GASTROINTESTINAL ULCER
     Dosage: 1 AMP
     Dates: start: 20170331
  7. INSULINA DETEMIR [Suspect]
     Active Substance: INSULIN DETEMIR
     Indication: TYPE 2 DIABETES MELLITUS
     Dosage: 50 UI DINNER
     Route: 058
     Dates: start: 20170331, end: 20170405
  8. PARACETAMOL [Concomitant]
     Active Substance: ACETAMINOPHEN
     Dosage: 1GR/8H
     Dates: start: 20170331
  9. SIMVASTATINA 20 [Concomitant]
     Indication: DYSLIPIDAEMIA
     Dosage: 0.0.1
     Route: 048
     Dates: start: 20170331

REACTIONS (1)
  - Hypoglycaemia [Recovered/Resolved]

NARRATIVE: CASE EVENT DATE: 20170405
